FAERS Safety Report 17733860 (Version 2)
Quarter: 2020Q2

REPORT INFORMATION
  Report Type: Spontaneous
  Country: US (occurrence: US)
  Receive Date: 20200501
  Receipt Date: 20200529
  Transmission Date: 20200714
  Serious: Yes (Life-Threatening, Hospitalization)
  Sender: FDA-Public Use
  Company Number: US-MYLANLABS-2020M1042545

PATIENT
  Age: 33 Year
  Sex: Female

DRUGS (3)
  1. COLCHICINE. [Suspect]
     Active Substance: COLCHICINE
     Dosage: 60 DOSAGE FORM 60 TABLETS OF 0.6MG TABLET INGESTED AS AN INTENTIONAL OVERDOSE
     Route: 048
  2. COLCHICINE. [Suspect]
     Active Substance: COLCHICINE
     Indication: PERICARDITIS
     Dosage: 0.6 MILLIGRAM, BID
     Route: 048
  3. CYANOCOBALAMIN. [Suspect]
     Active Substance: CYANOCOBALAMIN
     Indication: SHOCK
     Dosage: HIGH-DOSE
     Route: 065

REACTIONS (21)
  - Renal failure [Recovered/Resolved]
  - Drug ineffective [Unknown]
  - Hypokinesia [Recovering/Resolving]
  - Transaminases increased [Recovered/Resolved]
  - Neutropenia [Recovered/Resolved]
  - Cardiogenic shock [Recovered/Resolved]
  - Coagulopathy [Recovered/Resolved]
  - Acute kidney injury [Recovered/Resolved]
  - Acute respiratory distress syndrome [Recovering/Resolving]
  - Intentional overdose [Recovered/Resolved]
  - Multiple organ dysfunction syndrome [Recovered/Resolved]
  - Distributive shock [Recovered/Resolved]
  - Hypotension [Recovered/Resolved]
  - Shock [Recovered/Resolved]
  - Toxicity to various agents [Recovered/Resolved]
  - Septic shock [Recovering/Resolving]
  - Hepatic necrosis [Recovering/Resolving]
  - Cardiac failure congestive [Recovered/Resolved]
  - Alopecia [Recovered/Resolved]
  - Diarrhoea [Recovering/Resolving]
  - Paralysis [Recovered/Resolved]
